FAERS Safety Report 20133008 (Version 1)
Quarter: 2021Q4

REPORT INFORMATION
  Report Type: Spontaneous
  Country: NL (occurrence: NL)
  Receive Date: 20211201
  Receipt Date: 20211201
  Transmission Date: 20220303
  Serious: Yes (Life-Threatening, Hospitalization, Other)
  Sender: FDA-Public Use
  Company Number: None

PATIENT
  Age: 81 Year
  Sex: Female
  Weight: 55 kg

DRUGS (12)
  1. NAPROXEN [Interacting]
     Active Substance: NAPROXEN
     Indication: Pain
     Dosage: 1000 MILLIGRAM DAILY; BRAND NAME NOT SPECIFIED
     Route: 065
     Dates: start: 20211018, end: 20211023
  2. PHENPROCOUMON [Interacting]
     Active Substance: PHENPROCOUMON
     Indication: Peripheral arterial occlusive disease
     Dosage: 3 MILLIGRAM DAILY;
     Dates: start: 20171212, end: 20211023
  3. DENOSUMAB [Concomitant]
     Active Substance: DENOSUMAB
     Dosage: INJECTION LIQUID, 60 MG/ML, INJVLST, BRAND NAME NOT SPECIFIED, THERAPY START AND END DATE: ASKU
  4. METHOTREXATE [Concomitant]
     Active Substance: METHOTREXATE
     Dosage: 2.5 MG, BRAND NAME NOT SPECIFIED, THERAPY START AND END DATE: ASKU
  5. FUROSEMIDE [Concomitant]
     Active Substance: FUROSEMIDE
     Dosage: 20 MG, BRAND NAME NOT SPECIFIED, THERAPY START AND END DATE: ASKU
  6. SOTALOL [Concomitant]
     Active Substance: SOTALOL
     Dosage: 80 MG, BRAND NAME NOT SPECIFIED, THERAPY START AND END DATE: ASKU
  7. NIFEDIPINE [Concomitant]
     Active Substance: NIFEDIPINE
     Dosage: 10 MG, RETARD, BRAND NAME NOT SPECIFIED, THERAPY START AND END DATE: ASKU
  8. FOLIC ACID [Concomitant]
     Active Substance: FOLIC ACID
     Dosage: 5 MG, BRAND NAME NOT SPECIFIED, THERAPY START AND END DATE: ASKU
  9. METOPROLOL(TARTRATE) [Concomitant]
     Dosage: 200 MG, MGA (TARTRATE), BRAND NAME NOT SPECIFIED, THERAPY START AND END DATE: ASKU
  10. CLINDAMYCIN [Concomitant]
     Active Substance: CLINDAMYCIN
     Dosage: 300 MG, BRAND NAME NOT SPECIFIED, THERAPY START AND END DATE: ASKU
  11. CALCIUM CARB/COLECAL/ CAD [Concomitant]
     Dosage: 1,25 MG/800IE, AGRICULTURAL (500MG CA) / ORANGE SPARKLING GRANULATE 500MG/880IE IN SACHET, 1 DF, THE
  12. METAMIZOL [Concomitant]
     Active Substance: METAMIZOLE SODIUM
     Dosage: INJECTION LIQUID, 500 MG/ML, INJVLST, BRAND NAME NOT SPECIFIED, THERAPY START AND END DATE: ASKU

REACTIONS (5)
  - Hypovolaemic shock [Recovering/Resolving]
  - Melaena [Unknown]
  - Gastric ulcer [Unknown]
  - Haemoglobin decreased [Unknown]
  - Drug interaction [Unknown]

NARRATIVE: CASE EVENT DATE: 20211023
